FAERS Safety Report 21375486 (Version 1)
Quarter: 2022Q3

REPORT INFORMATION
  Report Type: Spontaneous
  Country: IT (occurrence: IT)
  Receive Date: 20220926
  Receipt Date: 20220926
  Transmission Date: 20221026
  Serious: Yes (Hospitalization, Other)
  Sender: FDA-Public Use
  Company Number: None

PATIENT
  Age: 82 Year
  Sex: Female

DRUGS (7)
  1. SOTALOL [Suspect]
     Active Substance: SOTALOL
     Indication: Supraventricular tachycardia
     Dosage: 40 MG, QD (SOLUBLE TABLET)
     Route: 048
     Dates: end: 20200806
  2. SOTALOL [Suspect]
     Active Substance: SOTALOL
     Dosage: 20 MG, QD, (80 MG 1/4 TABLET AT 8-20 HOURS)
     Route: 048
     Dates: end: 20200806
  3. FENTANYL [Suspect]
     Active Substance: FENTANYL
     Indication: Pain
     Dosage: 100 UG
     Route: 048
  4. PANTOPRAZOLE SODIUM [Suspect]
     Active Substance: PANTOPRAZOLE SODIUM
     Indication: Prophylaxis against gastrointestinal ulcer
     Dosage: 20 MG
     Route: 048
  5. CHOLECALCIFEROL [Concomitant]
     Active Substance: CHOLECALCIFEROL
     Indication: Vitamin D deficiency
     Dosage: 25000 DOSAGE FORM
     Route: 048
  6. ASPIRIN [Concomitant]
     Active Substance: ASPIRIN
     Indication: Thrombosis prophylaxis
     Dosage: 100 MG
     Route: 048
  7. CORTISONE ACETATE [Concomitant]
     Active Substance: CORTISONE ACETATE
     Indication: Antiinflammatory therapy
     Dosage: 25 MG
     Route: 048

REACTIONS (3)
  - Syncope [Recovered/Resolved]
  - Bradycardia [Recovered/Resolved]
  - Product use in unapproved indication [Recovered/Resolved]

NARRATIVE: CASE EVENT DATE: 20200805
